FAERS Safety Report 8938534 (Version 6)
Quarter: 2019Q3

REPORT INFORMATION
  Report Type: Report from Study
  Country: NL (occurrence: NL)
  Receive Date: 20121130
  Receipt Date: 20190729
  Transmission Date: 20191005
  Serious: Yes (Death, Hospitalization, Other)
  Sender: FDA-Public Use
  Company Number: NL-ROCHE-1161653

PATIENT

DRUGS (6)
  1. YTTRIUM 90 IBRITUMOMAB TIUXETAN [Suspect]
     Active Substance: IBRITUMOMAB TIUXETAN
     Indication: DIFFUSE LARGE B-CELL LYMPHOMA
     Dosage: 90Y-IBRITUMOMAB TIUXETAN WAS GIVEN AT A DOSE OF 14.8 MBQ/KG IN PATIENTS WITH NO PRIOR ASCT AND A PLA
     Route: 065
  2. LOMUSTINE. [Suspect]
     Active Substance: LOMUSTINE
     Indication: DIFFUSE LARGE B-CELL LYMPHOMA
     Dosage: DAY 1, EVERY 28 DAYS FOR 4 CYCLES
     Route: 048
  3. RITUXIMAB. [Suspect]
     Active Substance: RITUXIMAB
     Indication: DIFFUSE LARGE B-CELL LYMPHOMA
     Dosage: DAY 1, EVERY 28 DAYS FOR 4 CYCLES
     Route: 042
  4. ETOPOSIDE. [Suspect]
     Active Substance: ETOPOSIDE
     Indication: DIFFUSE LARGE B-CELL LYMPHOMA
     Dosage: DAY 1-5, EVERY 28 DAYS FOR 4 CYCLES
     Route: 048
  5. PREDNISONE. [Suspect]
     Active Substance: PREDNISONE
     Indication: DIFFUSE LARGE B-CELL LYMPHOMA
     Dosage: DAY 1-DAY 5 Q 28 DAYS FOR 4 CYCLES
     Route: 048
  6. CHLORAMBUCIL [Suspect]
     Active Substance: CHLORAMBUCIL
     Indication: DIFFUSE LARGE B-CELL LYMPHOMA
     Dosage: DAY 1-DAY 5 Q 28 DAYS FOR 4 CYCLES
     Route: 048

REACTIONS (12)
  - Neutropenia [Recovered/Resolved]
  - Gastrointestinal toxicity [Unknown]
  - Thrombocytopenia [Recovered/Resolved]
  - Escherichia sepsis [Fatal]
  - Febrile neutropenia [Unknown]
  - Squamous cell carcinoma of skin [Unknown]
  - Infection [Unknown]
  - Neuroendocrine carcinoma [Unknown]
  - Malaise [Unknown]
  - Pneumonia [Fatal]
  - Non-small cell lung cancer [Unknown]
  - Myelodysplastic syndrome [Unknown]
